FAERS Safety Report 6675408-4 (Version None)
Quarter: 2010Q2

REPORT INFORMATION
  Report Type: 
  Country: None (occurrence: None)
  Receive Date: 20100409
  Receipt Date: 20100406
  Transmission Date: 20101027
  Serious: Yes (Other)
  Sender: FDA-Public Use
  Company Number: US-WYE-H10150209

PATIENT
  Sex: Male
  Weight: 108.96 kg

DRUGS (1)
  1. DRISTAN [Suspect]
     Indication: NASAL CONGESTION
     Dosage: 1 SPRAY ONCE A DAY OR EVERY 24 HOURS
     Route: 045
     Dates: start: 20090617, end: 20090619

REACTIONS (3)
  - EPISTAXIS [None]
  - NASAL DISORDER [None]
  - SINUSITIS [None]
